FAERS Safety Report 24648000 (Version 1)
Quarter: 2024Q4

REPORT INFORMATION
  Report Type: Spontaneous
  Country: US (occurrence: US)
  Receive Date: 20241121
  Receipt Date: 20241121
  Transmission Date: 20250115
  Serious: No
  Sender: PADAGIS
  Company Number: US-PADAGIS-2024PAD01812

PATIENT

DRUGS (3)
  1. ESTRADIOL [Suspect]
     Active Substance: ESTRADIOL
     Indication: Menopause
     Dosage: UNK
     Route: 065
     Dates: start: 20241007
  2. ESTRADIOL [Suspect]
     Active Substance: ESTRADIOL
     Dosage: UNK, BUMPED DOSE UP TO 0.75 MG
     Route: 065
     Dates: end: 20241016
  3. ESTRADIOL [Suspect]
     Active Substance: ESTRADIOL
     Dosage: UNK, HALF OF THE 0.75 MG DOSE
     Route: 065
     Dates: start: 20241019, end: 20241020

REACTIONS (6)
  - Abdominal distension [Recovering/Resolving]
  - Constipation [Recovering/Resolving]
  - Dry mouth [Recovering/Resolving]
  - Anxiety [Recovering/Resolving]
  - Hot flush [Recovering/Resolving]
  - Insomnia [Recovering/Resolving]

NARRATIVE: CASE EVENT DATE: 20241019
